FAERS Safety Report 7638234-5 (Version None)
Quarter: 2011Q3

REPORT INFORMATION
  Report Type: 
  Country: None (occurrence: None)
  Receive Date: 20110727
  Receipt Date: 20110722
  Transmission Date: 20111222
  Serious: Yes (Other)
  Sender: FDA-Public Use
  Company Number: NL-PFIZER INC-2011163290

PATIENT
  Age: 73 Year
  Sex: Female

DRUGS (5)
  1. AMLODIPINE [Concomitant]
  2. METFORMIN [Concomitant]
  3. PANTOPRAZOLE [Suspect]
     Dosage: 40 MG, DAILY
  4. ATENOLOL [Concomitant]
  5. PREDNISONE [Concomitant]
     Dosage: 20 MG, DAILY

REACTIONS (2)
  - HYPOMAGNESAEMIA [None]
  - HYPOKALAEMIA [None]
